FAERS Safety Report 10959690 (Version 2)
Quarter: 2015Q2

REPORT INFORMATION
  Report Type: Spontaneous
  Country: US (occurrence: US)
  Receive Date: 20150327
  Receipt Date: 20150524
  Transmission Date: 20150821
  Serious: No
  Sender: FDA-Public Use
  Company Number: US-JNJFOC-20110103807

PATIENT
  Age: 61 Year
  Sex: Female
  Weight: 85.73 kg

DRUGS (8)
  1. FUROSEMIDE. [Concomitant]
     Active Substance: FUROSEMIDE
     Route: 048
  2. HYDROCODONE [Concomitant]
     Active Substance: HYDROCODONE
     Route: 048
  3. FENTANYL TRANSDERMAL SYSTEM [Suspect]
     Active Substance: FENTANYL
     Indication: BACK PAIN
     Route: 062
     Dates: start: 201009
  4. FENTANYL TRANSDERMAL SYSTEM [Suspect]
     Active Substance: FENTANYL
     Indication: PAIN
     Route: 062
     Dates: start: 201010
  5. ALLOPURINOL. [Concomitant]
     Active Substance: ALLOPURINOL
     Indication: GOUT
     Route: 048
  6. LODRANE D [Concomitant]
     Active Substance: BROMPHENIRAMINE MALEATE\PSEUDOEPHEDRINE HYDROCHLORIDE
     Indication: HYPERSENSITIVITY
     Dosage: 2 CAPSULES AT BEDTIME
     Route: 048
  7. UNKNOWN MEDICATION [Concomitant]
     Active Substance: UNSPECIFIED INGREDIENT
     Route: 048
  8. POTASSIUM [Concomitant]
     Active Substance: POTASSIUM
     Indication: NUTRITIONAL SUPPLEMENTATION
     Route: 048
     Dates: start: 201012

REACTIONS (3)
  - Drug ineffective [Not Recovered/Not Resolved]
  - Therapeutic response decreased [Not Recovered/Not Resolved]
  - Product quality issue [Unknown]

NARRATIVE: CASE EVENT DATE: 201009
